FAERS Safety Report 7224287-5 (Version None)
Quarter: 2011Q1

REPORT INFORMATION
  Report Type: 
  Country: None (occurrence: None)
  Receive Date: 20110113
  Receipt Date: 20110106
  Transmission Date: 20110831
  Serious: Yes (Hospitalization, Other)
  Sender: FDA-Public Use
  Company Number: US-AMGEN-USASP2011001071

PATIENT

DRUGS (15)
  1. CARVEDILOL [Concomitant]
  2. DANAZOL [Concomitant]
  3. INSULIN [Concomitant]
  4. NPLATE [Suspect]
     Indication: IDIOPATHIC THROMBOCYTOPENIC PURPURA
     Dates: start: 20090526
  5. NEXIUM [Concomitant]
  6. LANTUS [Concomitant]
  7. PREDNISONE [Concomitant]
  8. RHOGAM                             /00025301/ [Concomitant]
  9. WINRHO [Concomitant]
  10. SODIUM BICARBONATE [Concomitant]
  11. SIMVASTATIN [Concomitant]
  12. CALCIUM [Concomitant]
  13. COREG [Concomitant]
  14. SENSIPAR [Concomitant]
  15. PROZAC                             /00724401/ [Concomitant]

REACTIONS (5)
  - PULMONARY OEDEMA [None]
  - ATHERECTOMY [None]
  - PERIPHERAL REVASCULARISATION [None]
  - RENAL FAILURE [None]
  - ANGIOGRAM [None]
